FAERS Safety Report 6280374 (Version 36)
Quarter: 2014Q2

REPORT INFORMATION
  Report Type: Spontaneous
  Country: US (occurrence: US)
  Receive Date: 20070405
  Receipt Date: 20140617
  Transmission Date: 20141212
  Serious: Yes (Other)
  Sender: FDA-Public Use
  Company Number: PHEH2007US03438

PATIENT
  Age: 55 Year
  Sex: Female

DRUGS (28)
  1. AREDIA [Suspect]
     Indication: SARCOIDOSIS
     Dosage: 90 MG
     Route: 042
     Dates: start: 2001
  2. ZOMETA [Suspect]
     Indication: SARCOIDOSIS
     Dosage: 4 MG
     Route: 042
     Dates: start: 2001, end: 200411
  3. CHEMOTHERAPEUTICS [Suspect]
  4. AUGMENTIN [Interacting]
     Indication: OSTEOMYELITIS
  5. SUDAFED [Concomitant]
  6. CELEBREX [Concomitant]
  7. TYLENOL [Concomitant]
  8. CALCIUM W/VITAMIN D NOS [Concomitant]
  9. PREMPRO [Concomitant]
  10. EPOGEN [Concomitant]
  11. METHOTREXATE [Concomitant]
     Indication: SARCOIDOSIS
     Dates: end: 200301
  12. SEPTRA [Concomitant]
  13. VIOXX [Concomitant]
  14. PREVACID [Concomitant]
  15. ARANESP [Concomitant]
     Indication: ANAEMIA
  16. PREDNISONE [Concomitant]
  17. NAPROSYN [Concomitant]
     Dates: start: 2006
  18. INFLUENZA VACCINE [Concomitant]
     Dates: start: 2004
  19. PNEUMOCOCCAL VACCINE [Concomitant]
  20. PREMARIN [Concomitant]
     Indication: MENOPAUSE
     Dosage: 0.3 MG, QD
  21. PROVERA [Concomitant]
     Dosage: 2.5 MG, QD
  22. CORTISONE [Concomitant]
     Dosage: 80 MG, ONCE/SINGLE
     Route: 030
     Dates: start: 200306
  23. ULTRAM [Concomitant]
     Dosage: 50 MG, UNK
  24. ALLEGRA-D [Concomitant]
  25. OXYCODONE HYDROCHLORIDE [Concomitant]
     Dosage: 5 MG, UNK
  26. VALACICLOVIR HYDROCHLORIDE [Concomitant]
     Dosage: 1 G, UNK
  27. AMOXYCILLIN [Concomitant]
     Dosage: 500 MG, TID
  28. VICOPROFEN [Concomitant]
     Dosage: 7.5 MG OF HYDROCODONE- 200 MG OF IBUPROFEN

REACTIONS (153)
  - Large intestine polyp [Unknown]
  - Diarrhoea [Unknown]
  - Decreased appetite [Unknown]
  - Headache [Unknown]
  - Rash [Unknown]
  - Atrophic vulvovaginitis [Unknown]
  - Skin hyperpigmentation [Unknown]
  - Sinus congestion [Unknown]
  - Oropharyngeal pain [Unknown]
  - Tinnitus [Unknown]
  - Dysphonia [Unknown]
  - Herpes zoster [Unknown]
  - Abdominal pain [Unknown]
  - Upper respiratory tract infection [Unknown]
  - Haemorrhoids [Unknown]
  - Dyspepsia [Unknown]
  - Nasal septum deviation [Unknown]
  - Snoring [Unknown]
  - Temporomandibular joint syndrome [Unknown]
  - Gastroenteritis [Unknown]
  - Chronic obstructive pulmonary disease [Unknown]
  - Joint swelling [Unknown]
  - Erythema nodosum [Unknown]
  - Neutropenia [Unknown]
  - Osteosclerosis [Unknown]
  - Calculus ureteric [Unknown]
  - Lymph node calcification [Unknown]
  - Pulmonary mass [Unknown]
  - Splenic cyst [Unknown]
  - Lymphadenopathy [Unknown]
  - Granulomatous liver disease [Unknown]
  - Hepatic calcification [Unknown]
  - Bronchiectasis [Unknown]
  - Pericardial effusion [Unknown]
  - Lung disorder [Unknown]
  - Arteriosclerosis coronary artery [Unknown]
  - Splenic lesion [Unknown]
  - Oedema [Unknown]
  - Cough [Unknown]
  - Musculoskeletal pain [Unknown]
  - Dizziness [Not Recovered/Not Resolved]
  - Exostosis of jaw [Unknown]
  - Tooth loss [Unknown]
  - Aortic disorder [Unknown]
  - Chronic sinusitis [Unknown]
  - Osteomalacia [Unknown]
  - Menopausal symptoms [Unknown]
  - Polyuria [Unknown]
  - Polydipsia [Unknown]
  - Bronchitis [Unknown]
  - Dyskinesia [Unknown]
  - Breast cancer [Unknown]
  - Skin lesion [Unknown]
  - Leukopenia [Unknown]
  - Musculoskeletal chest pain [Unknown]
  - Bone pain [Unknown]
  - Pulmonary fibrosis [Unknown]
  - Cyst [Unknown]
  - Arthropathy [Unknown]
  - Deafness [Unknown]
  - Clostridium difficile colitis [Unknown]
  - Drug hypersensitivity [Unknown]
  - Tracheal calcification [Unknown]
  - Phlebolith [Unknown]
  - Balance disorder [Unknown]
  - Vomiting [Unknown]
  - Renal failure chronic [Unknown]
  - Somnolence [Unknown]
  - Nephrogenic anaemia [Unknown]
  - Colon adenoma [Unknown]
  - Angina pectoris [Unknown]
  - Migraine [Unknown]
  - Haematochezia [Unknown]
  - Anaemia [Unknown]
  - Fatigue [Unknown]
  - Influenza [Unknown]
  - Hypoaesthesia teeth [Unknown]
  - Iron deficiency [Unknown]
  - Dysarthria [Unknown]
  - Muscular weakness [Unknown]
  - Viral infection [Unknown]
  - Proteinuria [Unknown]
  - Breast pain [Unknown]
  - Haemorrhoidal haemorrhage [Unknown]
  - Peptic ulcer [Unknown]
  - Increased viscosity of nasal secretion [Unknown]
  - Conjunctivitis [Unknown]
  - Oral disorder [Unknown]
  - Lymphadenopathy mediastinal [Unknown]
  - Upper-airway cough syndrome [Unknown]
  - Memory impairment [Unknown]
  - Candida infection [Unknown]
  - Sinusitis [Unknown]
  - Obstructive airways disorder [Unknown]
  - Osteonecrosis of jaw [Recovering/Resolving]
  - Oral discomfort [Unknown]
  - Haemorrhage [Recovering/Resolving]
  - Pain [Recovering/Resolving]
  - Impaired healing [Unknown]
  - Osteomyelitis [Unknown]
  - Gingival abscess [Unknown]
  - Bone disorder [Recovering/Resolving]
  - Toothache [Unknown]
  - Sarcoidosis [Unknown]
  - Angiotensin converting enzyme increased [Not Recovered/Not Resolved]
  - Pyrexia [Unknown]
  - Feeling abnormal [Unknown]
  - Weight decreased [Unknown]
  - Malaise [Unknown]
  - Muscle spasms [Unknown]
  - Back pain [Unknown]
  - Vision blurred [Unknown]
  - Splenomegaly [Unknown]
  - Disease progression [Unknown]
  - Atelectasis [Unknown]
  - Lobar pneumonia [Unknown]
  - Vaginal haemorrhage [Unknown]
  - Osteonecrosis [Unknown]
  - Pulmonary embolism [Unknown]
  - Plantar fasciitis [Unknown]
  - Neuropathy peripheral [Unknown]
  - Cholelithiasis [Unknown]
  - Nephropathy [Unknown]
  - Hydronephrosis [Unknown]
  - Bursitis [Unknown]
  - Thrombocytopenia [Unknown]
  - Fibrosis [Unknown]
  - Osteoarthritis [Unknown]
  - Gastric ulcer [Unknown]
  - Rotator cuff syndrome [Unknown]
  - Urinary tract infection [Unknown]
  - Haematuria [Unknown]
  - Nephrolithiasis [Unknown]
  - Renal atrophy [Unknown]
  - Hypotension [Unknown]
  - Depression [Unknown]
  - Tympanic membrane disorder [Unknown]
  - Vertigo [Unknown]
  - Seasonal allergy [Unknown]
  - Dyspnoea [Unknown]
  - Insomnia [Unknown]
  - Chest pain [Recovered/Resolved]
  - Myalgia [Unknown]
  - Arthralgia [Unknown]
  - Blood urea increased [Unknown]
  - Cervicitis [Recovered/Resolved]
  - Uterine haemorrhage [Unknown]
  - Pelvic pain [Unknown]
  - Pollakiuria [Unknown]
  - Micturition urgency [Unknown]
  - Nocturia [Unknown]
  - Endometrial atrophy [Unknown]
  - Rectal haemorrhage [Unknown]
